FAERS Safety Report 8795749 (Version 2)
Quarter: 2013Q2

REPORT INFORMATION
  Report Type: Report from Study
  Country: FR (occurrence: FR)
  Receive Date: 20120920
  Receipt Date: 20130521
  Transmission Date: 20140414
  Serious: Yes (Other)
  Sender: FDA-Public Use
  Company Number: FR-CELGENEUS-056-C5013-12072497

PATIENT
  Age: 82 Year
  Sex: Female
  Weight: 50 kg

DRUGS (18)
  1. THALIDOMIDE [Suspect]
     Indication: PLASMA CELL MYELOMA
     Dosage: 100 MILLIGRAM
     Route: 048
     Dates: start: 20090728
  2. THALIDOMIDE [Suspect]
     Route: 048
     Dates: end: 20110127
  3. MELPHALAN [Suspect]
     Indication: PLASMA CELL MYELOMA
     Dosage: 12 MILLIGRAM
     Route: 065
     Dates: start: 20090728
  4. MELPHALAN [Suspect]
     Route: 065
     Dates: end: 20101220
  5. PREDNISONE [Suspect]
     Indication: PLASMA CELL MYELOMA
     Dosage: 120 MILLIGRAM
     Route: 065
     Dates: start: 20090728
  6. PREDNISONE [Suspect]
     Route: 065
     Dates: end: 20101220
  7. REVLIMID [Suspect]
     Indication: PLASMA CELL MYELOMA
     Route: 048
     Dates: start: 20111213, end: 20120704
  8. NEODEX [Concomitant]
     Indication: PLASMA CELL MYELOMA
     Route: 065
     Dates: start: 20111213, end: 20120704
  9. ASPIRINE [Concomitant]
     Indication: THROMBOSIS PROPHYLAXIS
     Dosage: 100 MILLIGRAM
     Route: 048
     Dates: start: 201112
  10. LYTOS [Concomitant]
     Indication: PROPHYLAXIS
     Dosage: 1040 MILLIGRAM
     Route: 048
     Dates: start: 20090727
  11. ASPEGIC [Concomitant]
     Indication: THROMBOSIS PROPHYLAXIS
     Dosage: 100 MILLIGRAM
     Route: 048
     Dates: start: 20090727
  12. ZELITREX [Concomitant]
     Indication: PROPHYLAXIS
     Dosage: 1000 MILLIGRAM
     Route: 048
     Dates: start: 20090727
  13. ORACILLINE [Concomitant]
     Indication: PROPHYLAXIS
     Dosage: 2 IU (INTERNATIONAL UNIT)
     Route: 048
     Dates: start: 20090727
  14. FORLAX [Concomitant]
     Indication: CONSTIPATION PROPHYLAXIS
     Dosage: 10 MILLIGRAM
     Route: 048
     Dates: start: 20090727
  15. DIFFU K [Concomitant]
     Indication: PROPHYLAXIS
     Route: 048
     Dates: start: 20090727
  16. EUPANTOL [Concomitant]
     Indication: PROPHYLAXIS
     Dosage: 20 MILLIGRAM
     Route: 048
     Dates: start: 20090727
  17. WELLVONE [Concomitant]
     Indication: INFECTION PROPHYLAXIS
     Route: 048
     Dates: start: 20090814
  18. TOPALGIC [Concomitant]
     Indication: BACK PAIN
     Dosage: 50 MILLIGRAM
     Route: 048
     Dates: start: 20091208

REACTIONS (1)
  - Basal cell carcinoma [Recovered/Resolved]
